FAERS Safety Report 9121799 (Version 1)
Quarter: 2012Q4

REPORT INFORMATION
  Report Type: Spontaneous
  Country: US (occurrence: None)
  Receive Date: 20121026
  Receipt Date: 20121026
  Transmission Date: 20130627
  Serious: No
  Sender: FDA-Public Use
  Company Number: 2012US-004321

PATIENT
  Age: 60 Year
  Sex: Male

DRUGS (2)
  1. OMONTYS (PEGINESATIDE) SOLUTION FOR INJECTION [Suspect]
     Indication: NEPHROGENIC ANAEMIA
     Dosage: 2 mg,  Q 4 weeks
     Dates: start: 20120731, end: 20120731
  2. ZEMPLAR [Concomitant]

REACTIONS (2)
  - Feeling jittery [None]
  - Fatigue [None]
